FAERS Safety Report 12837945 (Version 3)
Quarter: 2016Q4

REPORT INFORMATION
  Report Type: Spontaneous
  Country: JP (occurrence: JP)
  Receive Date: 20161012
  Receipt Date: 20161208
  Transmission Date: 20170207
  Serious: Yes (Hospitalization, Other)
  Sender: FDA-Public Use
  Company Number: JP-SUN PHARMACEUTICAL INDUSTRIES LTD-2016RR-125749

PATIENT
  Age: 50 Year
  Sex: Male

DRUGS (5)
  1. GEMCITABINE [Suspect]
     Active Substance: GEMCITABINE\GEMCITABINE HYDROCHLORIDE
     Indication: THYMOMA MALIGNANT RECURRENT
     Dosage: CYCLICAL
     Route: 065
  2. PACLITAXEL. [Suspect]
     Active Substance: PACLITAXEL
     Indication: THYMOMA MALIGNANT RECURRENT
     Dosage: CYCLICAL
     Route: 065
  3. CISPLATIN. [Suspect]
     Active Substance: CISPLATIN
     Indication: THYMOMA MALIGNANT RECURRENT
     Dosage: 4 CYCLES
     Route: 065
  4. ETOPOSIDE. [Suspect]
     Active Substance: ETOPOSIDE
     Indication: THYMOMA MALIGNANT RECURRENT
     Dosage: 4 CYCLES
     Route: 065
  5. PEMETREXED [Suspect]
     Active Substance: PEMETREXED
     Indication: THYMOMA MALIGNANT RECURRENT
     Dosage: THREE CYCLES
     Route: 065

REACTIONS (3)
  - Autoimmune haemolytic anaemia [Recovering/Resolving]
  - Blood bilirubin increased [Recovering/Resolving]
  - Bone marrow failure [Recovering/Resolving]
